FAERS Safety Report 18782162 (Version 1)
Quarter: 2021Q1

REPORT INFORMATION
  Report Type: Spontaneous
  Country: US (occurrence: US)
  Receive Date: 20210125
  Receipt Date: 20210125
  Transmission Date: 20210419
  Serious: No
  Sender: FDA-Public Use
  Company Number: US-ALLERGAN-2018623US

PATIENT
  Age: 7 Year
  Sex: Male

DRUGS (1)
  1. RESTASIS [Suspect]
     Active Substance: CYCLOSPORINE
     Indication: VERNAL KERATOCONJUNCTIVITIS
     Dosage: UNK UNK, BID
     Dates: start: 201908

REACTIONS (1)
  - Off label use [Unknown]
